FAERS Safety Report 8096955-7 (Version None)
Quarter: 2012Q1

REPORT INFORMATION
  Report Type: 
  Country: None (occurrence: None)
  Receive Date: 20120129
  Receipt Date: 20111111
  Transmission Date: 20120608
  Serious: No
  Sender: FDA-Public Use
  Company Number: US-ABBOTT-11P-163-0843689-00

PATIENT
  Sex: Female

DRUGS (10)
  1. HUMIRA [Suspect]
     Dates: start: 20110719, end: 20111018
  2. ENALAPRIL [Concomitant]
     Indication: HYPERTENSION
  3. FOLIC ACID [Concomitant]
     Indication: PRODUCT USED FOR UNKNOWN INDICATION
  4. PREMARIN [Concomitant]
     Indication: HORMONE REPLACEMENT THERAPY
  5. MULTI-VITAMIN [Concomitant]
     Indication: PRODUCT USED FOR UNKNOWN INDICATION
  6. LOVASTATIN [Concomitant]
     Indication: BLOOD CHOLESTEROL INCREASED
  7. HUMIRA [Suspect]
     Indication: CROHN'S DISEASE
     Dosage: LOADING DOSE-FOUR PENS
     Dates: start: 20110719
  8. HUMIRA [Suspect]
     Dosage: 80 MG ON DAY 15
  9. PENTASA [Concomitant]
     Indication: CROHN'S DISEASE
  10. ASPIRIN [Concomitant]
     Indication: PRODUCT USED FOR UNKNOWN INDICATION

REACTIONS (8)
  - HEADACHE [None]
  - INJECTION SITE WARMTH [None]
  - ORAL HERPES [None]
  - INJECTION SITE SWELLING [None]
  - INJECTION SITE ERYTHEMA [None]
  - INJECTION SITE PAPULE [None]
  - INJECTION SITE REACTION [None]
  - INJECTION SITE HAEMATOMA [None]
